FAERS Safety Report 24935420 (Version 1)
Quarter: 2025Q1

REPORT INFORMATION
  Report Type: Spontaneous
  Country: IN (occurrence: IN)
  Receive Date: 20250206
  Receipt Date: 20250206
  Transmission Date: 20250409
  Serious: Yes (Hospitalization, Other)
  Sender: CIPLA
  Company Number: IN-CIPLA LTD.-2025IN01454

PATIENT

DRUGS (3)
  1. ACYCLOVIR [Suspect]
     Active Substance: ACYCLOVIR
     Indication: Encephalitis
     Route: 042
  2. CEFTRIAXONE [Concomitant]
     Active Substance: CEFTRIAXONE
     Indication: Encephalitis
     Route: 042
  3. VANCOMYCIN [Concomitant]
     Active Substance: VANCOMYCIN
     Indication: Encephalitis
     Route: 042

REACTIONS (1)
  - Dermatitis bullous [Recovered/Resolved]
